FAERS Safety Report 8987956 (Version 1)
Quarter: 2012Q4

REPORT INFORMATION
  Report Type: Report from Study
  Country: FR (occurrence: FR)
  Receive Date: 20121227
  Receipt Date: 20121227
  Transmission Date: 20130627
  Serious: Yes (Hospitalization, Other)
  Sender: FDA-Public Use
  Company Number: FR-ASTELLAS-2012EU011065

PATIENT
  Age: 75 Year
  Sex: Female
  Weight: 66.6 kg

DRUGS (26)
  1. TACROLIMUS [Suspect]
     Indication: RENAL TRANSPLANT
     Dosage: 7 mg, Unknown/D
     Route: 065
     Dates: start: 20090505
  2. TACROLIMUS [Suspect]
     Dosage: 8 mg, Unknown/D
     Route: 065
     Dates: start: 20090509, end: 20100523
  3. MYCOPHENOLATE MOFETIL [Suspect]
     Indication: RENAL TRANSPLANT
     Dosage: 2000 mg, Unknown/D
     Route: 065
     Dates: start: 20090505
  4. CORTICOSTEROID NOS [Concomitant]
     Dosage: UNK
     Route: 065
     Dates: start: 20090505, end: 20090903
  5. BACTRIM [Concomitant]
     Dosage: UNK
     Route: 065
     Dates: start: 20090512, end: 20091112
  6. ROVALCYTE [Concomitant]
     Dosage: 450 mg, Unknown/D
     Route: 065
     Dates: start: 20090512, end: 20090730
  7. TRIFLUCAN [Concomitant]
     Dosage: 50 mg, Unknown/D
     Route: 065
     Dates: start: 20090507, end: 20090519
  8. INIPOMP [Concomitant]
     Dosage: 20 UNK, UNK
     Route: 065
     Dates: start: 20090505
  9. INIPOMP [Concomitant]
     Dosage: 20 mg, Unknown/D
     Route: 065
     Dates: start: 20090506, end: 20100104
  10. LANTUS [Concomitant]
     Dosage: 20 IU, Unknown/D
     Route: 065
     Dates: start: 20090513, end: 20090518
  11. LANTUS [Concomitant]
     Dosage: 14 IU, Unknown/D
     Route: 065
     Dates: start: 20090522
  12. CARDENSIEL [Concomitant]
     Dosage: 1.25 mg, Unknown/D
     Route: 065
     Dates: start: 20090511, end: 20090607
  13. NEORECORMON [Concomitant]
     Dosage: 10000 U/l, Unknown/D
     Route: 065
     Dates: start: 20090508
  14. NEORECORMON [Concomitant]
     Dosage: 30 IU, Weekly
     Route: 065
     Dates: start: 20090509, end: 20090602
  15. SIMULECT [Concomitant]
     Dosage: 20 mg, Unknown/D
     Route: 065
     Dates: start: 20090505, end: 20090510
  16. ROCEPHINE [Concomitant]
     Dosage: 1 g, Unknown/D
     Route: 065
     Dates: start: 20090514, end: 20090604
  17. FLAGYL /00012501/ [Concomitant]
     Dosage: 1500 mg, Unknown/D
     Route: 065
     Dates: start: 20090514, end: 20090604
  18. LINEZOLID [Concomitant]
     Dosage: 1200 mg, Unknown/D
     Route: 065
     Dates: start: 20090525, end: 20090526
  19. PHOSPHONEUROS [Concomitant]
     Dosage: 90 DF, Unknown/D
     Route: 065
     Dates: start: 20090514, end: 20091001
  20. FLODIL                             /00646501/ [Concomitant]
     Dosage: 5 mg, Unknown/D
     Route: 065
     Dates: start: 20090518, end: 20090622
  21. NOVORAPID [Concomitant]
     Dosage: UNK
     Route: 065
     Dates: start: 20090522
  22. DETENSIEL                          /00802602/ [Concomitant]
     Dosage: 5 mg, Unknown/D
     Route: 065
     Dates: start: 20090603
  23. FLUINDIONE [Concomitant]
     Dosage: 20 mg, Unknown/D
     Route: 065
     Dates: start: 20090616, end: 20100202
  24. BICARBONATE SODIUM [Concomitant]
     Dosage: 2 g, Unknown/D
     Route: 065
     Dates: start: 20090530
  25. TARGOCID [Concomitant]
     Dosage: 300 mg, Unknown/D
     Route: 065
     Dates: start: 20090530, end: 20090625
  26. LOVENOX [Concomitant]
     Dosage: 0.8 ml, Unknown/D
     Route: 065
     Dates: start: 20090604, end: 20090625

REACTIONS (5)
  - Cholecystitis [Recovered/Resolved]
  - Pulmonary embolism [Recovered/Resolved]
  - Squamous cell carcinoma of skin [Recovered/Resolved]
  - Squamous cell carcinoma [Recovered/Resolved]
  - Squamous cell carcinoma of skin [Recovered/Resolved]
